FAERS Safety Report 25467753 (Version 1)
Quarter: 2025Q2

REPORT INFORMATION
  Report Type: Spontaneous
  Country: US (occurrence: None)
  Receive Date: 20250622
  Receipt Date: 20250622
  Transmission Date: 20250716
  Serious: Yes (Disabling, Other)
  Sender: FDA-CTU
  Company Number: None

PATIENT

DRUGS (1)
  1. COSMETICS [Suspect]
     Active Substance: COSMETICS
     Dates: start: 20250603, end: 20250610

REACTIONS (2)
  - Dermatitis allergic [None]
  - Application site reaction [None]

NARRATIVE: CASE EVENT DATE: 20250609
